FAERS Safety Report 23474609 (Version 1)
Quarter: 2024Q1

REPORT INFORMATION
  Report Type: Report from Study
  Country: US (occurrence: US)
  Receive Date: 20240204
  Receipt Date: 20240204
  Transmission Date: 20240409
  Serious: Yes (Other)
  Sender: FDA-Public Use
  Company Number: US-EXELIXIS-CABO-23064681

PATIENT
  Age: 61 Year
  Sex: Male

DRUGS (3)
  1. CABOMETYX [Suspect]
     Active Substance: CABOZANTINIB S-MALATE
     Indication: Papillary renal cell carcinoma
     Dosage: 60 MG, QD
     Route: 048
     Dates: start: 202305, end: 202305
  2. CABOMETYX [Suspect]
     Active Substance: CABOZANTINIB S-MALATE
     Dosage: 40 MG, QD
     Route: 048
     Dates: start: 202305
  3. CABOMETYX [Suspect]
     Active Substance: CABOZANTINIB S-MALATE
     Dosage: 40 MG, QD
     Route: 048
     Dates: start: 20230619

REACTIONS (10)
  - Hypothyroidism [Unknown]
  - Metastases to spine [Unknown]
  - Skin burning sensation [Recovering/Resolving]
  - Skin erosion [Unknown]
  - Nodule [Recovering/Resolving]
  - Pruritus [Recovering/Resolving]
  - Pain in extremity [Unknown]
  - Dry skin [Unknown]
  - Blood creatinine abnormal [Unknown]
  - Tooth disorder [Unknown]

NARRATIVE: CASE EVENT DATE: 20230501
